FAERS Safety Report 7740175-X (Version None)
Quarter: 2011Q3

REPORT INFORMATION
  Report Type: 
  Country: None (occurrence: None)
  Receive Date: 20110909
  Receipt Date: 20110831
  Transmission Date: 20111222
  Serious: Yes (Hospitalization, Other)
  Sender: FDA-Public Use
  Company Number: JP-ROCHE-798342

PATIENT
  Age: 50 Year
  Sex: Male

DRUGS (6)
  1. HERCEPTIN [Suspect]
     Dosage: FORTH COURSE OF THE CHEMOTHERAPY
     Route: 041
  2. CISPLATIN [Suspect]
     Dosage: FORTH COURSE OF THE CHEMOTHERAPY, INTERRUPTED
     Route: 041
  3. XELODA [Suspect]
     Dosage: FORTH COURSE OF THE CHEMOTHERAPY,  INTERRUPTED.
     Route: 048
  4. CISPLATIN [Suspect]
     Indication: GASTRIC CANCER
     Dosage: DOSAGE IS UNCERTAIN.
     Route: 041
  5. HERCEPTIN [Suspect]
     Indication: GASTRIC CANCER
     Dosage: DOSE FORM: INJECTION, NOTE: DOSAGE IS UNCERTAIN.
     Route: 041
  6. XELODA [Suspect]
     Indication: GASTRIC CANCER
     Dosage: DOSAGE IS UNCERTAIN.
     Route: 048

REACTIONS (3)
  - ANAEMIA [None]
  - PALMAR-PLANTAR ERYTHRODYSAESTHESIA SYNDROME [None]
  - RENAL DISORDER [None]
